FAERS Safety Report 9729659 (Version 1)
Quarter: 2013Q4

REPORT INFORMATION
  Report Type: Spontaneous
  Country: US (occurrence: US)
  Receive Date: 20131204
  Receipt Date: 20131204
  Transmission Date: 20140711
  Serious: No
  Sender: FDA-Public Use
  Company Number: US-GILEAD-2009-0020906

PATIENT
  Age: 81 Year
  Sex: Female

DRUGS (9)
  1. LETAIRIS [Suspect]
     Indication: PULMONARY ARTERIAL HYPERTENSION
     Route: 048
     Dates: start: 20090218, end: 20090317
  2. COUMADIN [Concomitant]
  3. DEMADEX [Concomitant]
  4. LOPRESSOR [Concomitant]
  5. IMDUR [Concomitant]
  6. ZOCOR [Concomitant]
  7. COLCHICINE [Concomitant]
  8. PROBENECID [Concomitant]
  9. ALTACE [Concomitant]

REACTIONS (2)
  - Oedema [Not Recovered/Not Resolved]
  - Oedema peripheral [Not Recovered/Not Resolved]
